FAERS Safety Report 7773819-7 (Version None)
Quarter: 2011Q3

REPORT INFORMATION
  Report Type: 
  Country: None (occurrence: None)
  Receive Date: 20110920
  Receipt Date: 20110914
  Transmission Date: 20111222
  Serious: Yes (Other)
  Sender: FDA-Public Use
  Company Number: 2011SP042234

PATIENT
  Age: 29 Year
  Sex: Female
  Weight: 69.85 kg

DRUGS (1)
  1. NEXPLANON [Suspect]
     Indication: PRODUCT USED FOR UNKNOWN INDICATION
     Dosage: 68 MG; SBDE
     Route: 059
     Dates: start: 20110101, end: 20110905

REACTIONS (2)
  - PRODUCT QUALITY ISSUE [None]
  - DEVICE BREAKAGE [None]
